FAERS Safety Report 15331511 (Version 1)
Quarter: 2018Q3

REPORT INFORMATION
  Report Type: Report from Study
  Country: US (occurrence: US)
  Receive Date: 20180829
  Receipt Date: 20180829
  Transmission Date: 20181010
  Serious: Yes (Hospitalization, Other)
  Sender: FDA-Public Use
  Company Number: US-MALLINCKRODT-T201803044

PATIENT
  Age: 70 Year
  Sex: Female

DRUGS (2)
  1. REPOSITORY CORTICOTROPIN INJECTION [Suspect]
     Active Substance: CORTICOTROPIN
     Indication: SARCOIDOSIS
     Dosage: 80 UNITS/1 ML, EVERY 3 DAYS/EVERY 72 HOURS
     Route: 058
     Dates: start: 20180625
  2. REPOSITORY CORTICOTROPIN INJECTION [Suspect]
     Active Substance: CORTICOTROPIN
     Dosage: 80 UNITS/1 ML, 1 TIME WEEKLY FRIDAYS
     Route: 058
     Dates: start: 20180720, end: 20180803

REACTIONS (10)
  - Memory impairment [Unknown]
  - Blood pressure increased [Not Recovered/Not Resolved]
  - Musculoskeletal pain [Recovering/Resolving]
  - Drug dose omission [Unknown]
  - Cerebrovascular accident [Not Recovered/Not Resolved]
  - Visual acuity reduced [Not Recovered/Not Resolved]
  - Diabetes mellitus [Not Recovered/Not Resolved]
  - Facial paralysis [Not Recovered/Not Resolved]
  - Swelling [Unknown]
  - Headache [Recovering/Resolving]

NARRATIVE: CASE EVENT DATE: 2018
